FAERS Safety Report 15891756 (Version 4)
Quarter: 2019Q1

REPORT INFORMATION
  Report Type: Not Available
  Country: US (occurrence: US)
  Receive Date: 20190130
  Receipt Date: 20190319
  Transmission Date: 20190417
  Serious: Yes (Other)
  Sender: FDA-Public Use
  Company Number: US-NEUROCRINE BIOSCIENCES INC.-2019NBI00261

PATIENT
  Age: 80 Year
  Sex: Female

DRUGS (11)
  1. INGREZZA [Suspect]
     Active Substance: VALBENAZINE
     Indication: TARDIVE DYSKINESIA
     Route: 048
     Dates: start: 20180806, end: 20190220
  2. LISINOPRIL. [Concomitant]
     Active Substance: LISINOPRIL
     Dosage: IN THE MORNING
  3. JANUVIA [Concomitant]
     Active Substance: SITAGLIPTIN PHOSPHATE
  4. LEVOTHYROXINE. [Concomitant]
     Active Substance: LEVOTHYROXINE
     Dosage: IN THE MORNING
  5. AUSTEDO [Concomitant]
     Active Substance: DEUTETRABENAZINE
  6. INGREZZA [Suspect]
     Active Substance: VALBENAZINE
     Route: 048
  7. METFORMIN [Concomitant]
     Active Substance: METFORMIN HYDROCHLORIDE
     Dosage: IN THE MORNING
  8. CARDIZEM [Concomitant]
     Active Substance: DILTIAZEM HYDROCHLORIDE
     Dosage: ONCE IN MORNING AND ONCE IN THE AFTERNOON
  9. ELIQUIS [Concomitant]
     Active Substance: APIXABAN
     Dosage: MORNING DOSE.
  10. GABAPENTIN. [Concomitant]
     Active Substance: GABAPENTIN
     Indication: TARDIVE DYSKINESIA
  11. TRAMADOL. [Concomitant]
     Active Substance: TRAMADOL
     Indication: PAIN IN EXTREMITY

REACTIONS (7)
  - Parkinsonism [Unknown]
  - Inappropriate schedule of product administration [Unknown]
  - Patella fracture [Recovering/Resolving]
  - Drug effect decreased [None]
  - Fall [Recovering/Resolving]
  - Musculoskeletal stiffness [Recovering/Resolving]
  - Drug effect incomplete [None]

NARRATIVE: CASE EVENT DATE: 201812
